FAERS Safety Report 7805168-2 (Version None)
Quarter: 2011Q4

REPORT INFORMATION
  Report Type: 
  Country: None (occurrence: None)
  Receive Date: 20111010
  Receipt Date: 20111005
  Transmission Date: 20120403
  Serious: Yes (Other)
  Sender: FDA-Public Use
  Company Number: US-ABBOTT-11P-163-0852838-00

PATIENT
  Sex: Male
  Weight: 107.6 kg

DRUGS (21)
  1. HUMIRA [Suspect]
     Indication: COLITIS ULCERATIVE
  2. MERCAPTOPURINE [Concomitant]
     Indication: COLITIS ULCERATIVE
  3. FLINTSTONE WITH IRON [Concomitant]
     Indication: VITAMIN SUPPLEMENTATION
     Dosage: 2 CHEWABLES DAILY
  4. PREDNISONE [Concomitant]
     Indication: COLITIS ULCERATIVE
  5. PREDNISONE [Concomitant]
     Indication: CROHN'S DISEASE
  6. LANTUS [Concomitant]
     Indication: DIABETES MELLITUS
  7. HUMALOG [Concomitant]
     Indication: DIABETES MELLITUS
     Dosage: SLIDING SCALE
  8. IMODIUM A-D [Concomitant]
     Indication: DIARRHOEA
  9. MUCINEX DM [Concomitant]
     Indication: COUGH
  10. FLUTICASONE PROPIONATE [Concomitant]
     Indication: PRODUCT USED FOR UNKNOWN INDICATION
     Dosage: 2 SPRAYS BID
  11. MERCAPTOPURINE [Concomitant]
     Indication: CROHN'S DISEASE
  12. ZOFRAN HCL [Concomitant]
     Indication: NAUSEA
  13. CREON [Concomitant]
     Indication: PANCREATIC ATROPHY
  14. CYMBALTA [Concomitant]
     Indication: DEPRESSION
  15. HYDROXYZINE HCL [Concomitant]
     Indication: PRURITUS
  16. HUMIRA [Suspect]
     Indication: CROHN'S DISEASE
     Route: 058
     Dates: start: 20090901
  17. OMEPRAZOLE [Concomitant]
     Indication: GASTROOESOPHAGEAL REFLUX DISEASE
  18. TAMSULOSIN HCL [Concomitant]
     Indication: DYSURIA
  19. NORCO [Concomitant]
     Indication: PAIN
     Dosage: 7.5/325MG
  20. CALTRATE PLUS-D [Concomitant]
     Indication: MINERAL SUPPLEMENTATION
     Dosage: CHEWABLE: 1 DAILY
  21. CYMBACORT [Concomitant]
     Indication: SEASONAL ALLERGY
     Dosage: 160/4.5

REACTIONS (14)
  - COLITIS ULCERATIVE [None]
  - ANASTOMOTIC COMPLICATION [None]
  - DEVICE OCCLUSION [None]
  - SEPSIS [None]
  - CROHN'S DISEASE [None]
  - GASTROINTESTINAL PERFORATION [None]
  - IMPAIRED HEALING [None]
  - DRUG EFFECT DECREASED [None]
  - DIARRHOEA HAEMORRHAGIC [None]
  - INJECTION SITE PAIN [None]
  - ABDOMINAL PAIN [None]
  - URINARY BLADDER ABSCESS [None]
  - WOUND COMPLICATION [None]
  - POST PROCEDURAL COMPLICATION [None]
